FAERS Safety Report 13512621 (Version 1)
Quarter: 2017Q2

REPORT INFORMATION
  Report Type: Spontaneous
  Country: CH (occurrence: CH)
  Receive Date: 20170504
  Receipt Date: 20170504
  Transmission Date: 20170830
  Serious: Yes (Other)
  Sender: FDA-Public Use
  Company Number: CH-LPDUSPRD-20170537

PATIENT

DRUGS (1)
  1. FERINJECT [Suspect]
     Active Substance: FERRIC CARBOXYMALTOSE
     Dosage: DOSE UNKNOWN
     Route: 041
     Dates: start: 201607

REACTIONS (4)
  - Influenza [Unknown]
  - Pain in extremity [Unknown]
  - Pain [Unknown]
  - Hypophosphataemia [Unknown]

NARRATIVE: CASE EVENT DATE: 2016
